FAERS Safety Report 5853310-5 (Version None)
Quarter: 2008Q3

REPORT INFORMATION
  Report Type: 
  Country: None (occurrence: None)
  Receive Date: 20080821
  Receipt Date: 20080819
  Transmission Date: 20090109
  Serious: Yes (Death, Hospitalization, Other)
  Sender: FDA-Public Use
  Company Number: US-MERCK-0704USA03307

PATIENT
  Age: 59 Year
  Sex: Male
  Weight: 109 kg

DRUGS (3)
  1. FOSAMAX [Suspect]
     Route: 048
  2. ZOMETA [Suspect]
     Route: 065
  3. EFFEXOR [Concomitant]
     Route: 065

REACTIONS (28)
  - ANAEMIA [None]
  - ANXIETY [None]
  - ASTHENIA [None]
  - BENIGN NEOPLASM OF PROSTATE [None]
  - BLINDNESS UNILATERAL [None]
  - DEPRESSION [None]
  - DIZZINESS POSTURAL [None]
  - DRY EYE [None]
  - FALL [None]
  - HEADACHE [None]
  - HERPES ZOSTER [None]
  - MALAISE [None]
  - METASTASES TO BONE [None]
  - METASTASES TO CENTRAL NERVOUS SYSTEM [None]
  - NEUTROPENIA [None]
  - ORAL DISORDER [None]
  - OSTEONECROSIS [None]
  - PANCYTOPENIA [None]
  - PERIODONTITIS [None]
  - PROSTATE CANCER METASTATIC [None]
  - RETINAL VEIN THROMBOSIS [None]
  - SEPSIS [None]
  - SYNCOPE [None]
  - THROMBOCYTOPENIA [None]
  - UMBILICAL HERNIA [None]
  - URINARY RETENTION [None]
  - URINARY TRACT INFECTION [None]
  - UROSEPSIS [None]
